FAERS Safety Report 6082674-5 (Version None)
Quarter: 2009Q1

REPORT INFORMATION
  Report Type: 
  Country: None (occurrence: None)
  Receive Date: 20090218
  Receipt Date: 20090210
  Transmission Date: 20090719
  Serious: Yes (Other)
  Sender: FDA-Public Use
  Company Number: PHEH2007US11292

PATIENT
  Sex: Male
  Weight: 97.052 kg

DRUGS (33)
  1. ZOMETA [Suspect]
     Indication: PROSTATE CANCER
     Dosage: 4 MG, QMO
     Dates: start: 20051111, end: 20070301
  2. ZOMETA [Suspect]
     Indication: METASTASES TO BONE
  3. CASODEX [Concomitant]
     Dosage: 50 MG, QD
     Dates: start: 20050101
  4. LUPRON [Concomitant]
     Dosage: 30MG, EVERY 4 MONTHS
     Dates: start: 20050101
  5. ATENOLOL [Concomitant]
  6. HYDROCHLOROTHIAZIDE [Concomitant]
  7. NILANDRON [Concomitant]
     Dosage: 150 MG, UNK
     Dates: start: 20080313
  8. CALCIUM [Concomitant]
     Dosage: UNK
     Dates: start: 20050101
  9. VITAMIN D [Concomitant]
     Dosage: UNK
     Dates: start: 20050101
  10. FLOMAX [Concomitant]
     Dosage: 0.4 MG, UNK
  11. OXYCODONE HCL [Concomitant]
  12. LORTAB [Concomitant]
     Dosage: UNK
     Dates: start: 20070101
  13. PERIDEX [Concomitant]
  14. DOXYCYCLINE [Concomitant]
     Dosage: 100 MG, UNK
  15. HYDROCODONE BITARTRATE AND ACETAMINOPHEN [Concomitant]
     Dosage: 5/500
  16. NABUMETONE [Concomitant]
     Dosage: 750 MG, UNK
  17. ZOVIRAX [Concomitant]
     Dosage: 5%
     Route: 061
  18. CEFADROXIL [Concomitant]
     Dosage: 500 MG, UNK
  19. OXYCODONE AND ACETAMINOPHEN [Concomitant]
     Dosage: 5/323 MG
  20. ROXICET [Concomitant]
     Dosage: 5/325
  21. BENZONATATE [Concomitant]
     Dosage: 200 MG, UNK
  22. UROXATRAL [Concomitant]
     Dosage: 10 MG, UNK
  23. NAPROXEN [Concomitant]
     Dosage: 500 MG, UNK
  24. CHLORHEXIDINE GLUCONATE [Concomitant]
     Dosage: 0.12% RINSE
  25. PENICILLIN VK [Concomitant]
     Dosage: 500 MG, UNK
  26. CIPROFLOXACIN [Concomitant]
     Dosage: 250 MG, UNK
  27. ERYTHROMYCIN [Concomitant]
  28. VALTREX [Concomitant]
     Dosage: 1 G, UNK
  29. HYDROMORPHONE HCL [Concomitant]
     Dosage: 2 MG, UNK
  30. DIAZEPAM [Concomitant]
     Dosage: 5 MG, UNK
  31. ACETAMINOPHEN W/ CODEINE [Concomitant]
     Dosage: #3
  32. VICOPROFEN [Concomitant]
     Dosage: 200/7.5
  33. FLURAZEPAM [Concomitant]
     Dosage: 15 MG, UNK

REACTIONS (34)
  - ANXIETY [None]
  - BONE DISORDER [None]
  - BONE SWELLING [None]
  - BUCCAL MUCOSAL ROUGHENING [None]
  - DECREASED APPETITE [None]
  - DECREASED INTEREST [None]
  - DEFORMITY [None]
  - DENTAL CARIES [None]
  - DISCOMFORT [None]
  - EMOTIONAL DISTRESS [None]
  - GYNAECOMASTIA [None]
  - HEADACHE [None]
  - HERNIA REPAIR [None]
  - HERPES ZOSTER [None]
  - HIATUS HERNIA [None]
  - HOT FLUSH [None]
  - HYPERTENSION [None]
  - HYPOPHAGIA [None]
  - INJURY [None]
  - LEUKOPENIA [None]
  - LIFE EXPECTANCY SHORTENED [None]
  - METASTATIC NEOPLASM [None]
  - NEPHROLITHIASIS [None]
  - NOCTURIA [None]
  - ORAL DISORDER [None]
  - ORAL MUCOSAL ERYTHEMA [None]
  - OSTEONECROSIS [None]
  - PAIN [None]
  - PAIN IN JAW [None]
  - RENAL DISORDER [None]
  - TENDERNESS [None]
  - THROMBOCYTOPENIA [None]
  - TOOTH EXTRACTION [None]
  - WEIGHT DECREASED [None]
